FAERS Safety Report 5409177-2 (Version None)
Quarter: 2007Q3

REPORT INFORMATION
  Report Type: 
  Country: None (occurrence: None)
  Receive Date: 20070713
  Receipt Date: 20070509
  Transmission Date: 20080115
  Serious: Yes (Hospitalization)
  Sender: FDA-Public Use
  Company Number: US-JNJFOC-20070101347

PATIENT
  Age: 36 Year
  Sex: Female
  Weight: 68.0396 kg

DRUGS (4)
  1. ORTHO EVRA [Suspect]
     Indication: DRUG USE FOR UNKNOWN INDICATION
     Dosage: TRANSDERMAL
     Route: 062
     Dates: start: 20030701, end: 20050101
  2. DAYQUIL         (VICKS FORMULA 44M) [Concomitant]
  3. VITAMIN (VITAMINS) [Concomitant]
  4. IBUPROFIN (IBUPROFEN) [Concomitant]

REACTIONS (1)
  - PULMONARY EMBOLISM [None]
